FAERS Safety Report 11340689 (Version 1)
Quarter: 2015Q3

REPORT INFORMATION
  Report Type: Spontaneous
  Country: US (occurrence: US)
  Receive Date: 20150805
  Receipt Date: 20150805
  Transmission Date: 20151125
  Serious: No
  Sender: FDA-Public Use
  Company Number: US-PFIZER INC-2015250091

PATIENT
  Age: 36 Year
  Sex: Female
  Weight: 84 kg

DRUGS (15)
  1. PRAZOSIN [Concomitant]
     Active Substance: PRAZOSIN
     Indication: NIGHTMARE
     Dosage: 1 MG, NIGHTLY AT 9:00 PM
     Route: 048
     Dates: start: 20140714
  2. OMEPRAZOLE. [Concomitant]
     Active Substance: OMEPRAZOLE
     Indication: DYSPEPSIA
  3. GABAPENTIN. [Suspect]
     Active Substance: GABAPENTIN
     Indication: NEUROPATHY PERIPHERAL
     Dosage: 600 MG, 3X/DAY
     Route: 048
     Dates: start: 2015, end: 201506
  4. ACETAMINOPHEN AND CODEINE [Concomitant]
     Active Substance: ACETAMINOPHEN\CODEINE PHOSPHATE
     Indication: MIGRAINE
     Dosage: 2 CAPSULES, EVERY 4 HRS
     Dates: start: 201502
  5. GABAPENTIN. [Suspect]
     Active Substance: GABAPENTIN
     Indication: FIBROMYALGIA
     Dosage: 300 MG, UNK
     Route: 048
     Dates: start: 201503
  6. MELOXICAM. [Concomitant]
     Active Substance: MELOXICAM
     Indication: FIBROMYALGIA
     Dosage: 15 MG, DAILY
     Route: 048
     Dates: start: 201502
  7. AMBIEN [Concomitant]
     Active Substance: ZOLPIDEM TARTRATE
     Indication: INSOMNIA
     Dosage: ONE AT BEDTIME, MAXIMUM IS TWO
     Route: 048
     Dates: start: 201503
  8. OMEPRAZOLE. [Concomitant]
     Active Substance: OMEPRAZOLE
     Indication: GASTROOESOPHAGEAL REFLUX DISEASE
     Dosage: 40 MG, EVERY MORNING AT 6:00 AM
     Route: 048
  9. FIBER [Concomitant]
     Active Substance: PSYLLIUM HUSK
  10. PROMETHAZINE [Concomitant]
     Active Substance: PROMETHAZINE\PROMETHAZINE HYDROCHLORIDE
     Indication: INSOMNIA
     Dosage: 25 MG, 1X/DAY (AT BEDTIME)
     Route: 048
     Dates: start: 201503
  11. CETIRIZINE [Concomitant]
     Active Substance: CETIRIZINE HYDROCHLORIDE
     Indication: HYPERSENSITIVITY
     Dosage: 10 MG, EVERY DAY
     Route: 048
  12. CITALOPRAM [Concomitant]
     Active Substance: CITALOPRAM HYDROBROMIDE
     Indication: DEPRESSION
     Dosage: 40 MG, EVERY MORNING AT 7:00 AM
     Route: 048
     Dates: start: 201502
  13. PRAZOSIN [Concomitant]
     Active Substance: PRAZOSIN
     Indication: FLASHBACK
  14. FLUTICASONE [Concomitant]
     Active Substance: FLUTICASONE\FLUTICASONE PROPIONATE
     Indication: HYPERSENSITIVITY
     Dosage: 1 EACH NASAL, EVERY DAY
     Dates: start: 2003
  15. STOOL SOFTENER [Concomitant]
     Active Substance: DOCUSATE CALCIUM
     Indication: CONSTIPATION

REACTIONS (4)
  - Vomiting [Recovered/Resolved]
  - Drug ineffective for unapproved indication [Recovered/Resolved]
  - Somnolence [Recovered/Resolved]
  - Dyspepsia [Recovered/Resolved]

NARRATIVE: CASE EVENT DATE: 201503
